FAERS Safety Report 6477074-X (Version None)
Quarter: 2009Q4

REPORT INFORMATION
  Report Type: 
  Country: None (occurrence: None)
  Receive Date: 20091204
  Receipt Date: 20091204
  Transmission Date: 20100525
  Serious: Yes (Hospitalization)
  Sender: FDA-Public Use
  Company Number: None

PATIENT
  Sex: Male
  Weight: 57.1532 kg

DRUGS (8)
  1. VELCADE [Suspect]
     Indication: MESOTHELIOMA
     Dosage: 1.5MG/M2 IV
     Route: 042
     Dates: start: 20091117
  2. VELCADE [Suspect]
     Indication: MESOTHELIOMA
     Dosage: 1.5MG/M2 IV
     Route: 042
     Dates: start: 20091120
  3. ELOXATIN [Suspect]
     Indication: MESOTHELIOMA
     Dosage: 85MG/M2 IV
     Route: 042
     Dates: start: 20091120
  4. SENNA [Concomitant]
  5. DOCUSATE SODIUM [Concomitant]
  6. FOLIC ACID [Concomitant]
  7. FLOMAX [Concomitant]
  8. LUNESTA [Concomitant]

REACTIONS (1)
  - DYSPNOEA [None]
